FAERS Safety Report 23800309 (Version 1)
Quarter: 2024Q2

REPORT INFORMATION
  Report Type: Report from Study
  Country: ZA (occurrence: ZA)
  Receive Date: 20240430
  Receipt Date: 20240430
  Transmission Date: 20240717
  Serious: Yes (Other)
  Sender: FDA-Public Use
  Company Number: ZA-AstraZeneca-2024-189472

PATIENT
  Sex: Female
  Weight: 6.4 kg

DRUGS (1)
  1. SYNAGIS [Suspect]
     Active Substance: PALIVIZUMAB
     Indication: Respiratory syncytial virus infection
     Dosage: 100 MG EVERY 4 WEEK
     Route: 030

REACTIONS (2)
  - Illness [Unknown]
  - Product use issue [Unknown]
